FAERS Safety Report 8960970 (Version 1)
Quarter: 2012Q4

REPORT INFORMATION
  Report Type: 
  Country: US (occurrence: US)
  Receive Date: 20121212
  Receipt Date: 20121212
  Transmission Date: 20130627
  Serious: No
  Sender: FDA-Public Use
  Company Number: US-ASTRAZENECA-2012SE90012

PATIENT
  Age: 64 Year
  Sex: Female
  Weight: 73.8 kg

DRUGS (5)
  1. FASLODEX [Suspect]
     Indication: BREAST CANCER METASTATIC
     Route: 030
     Dates: start: 20111027
  2. LISINOPRIL [Suspect]
     Route: 048
  3. AMLODIPINE [Concomitant]
  4. CARVEDILOL [Concomitant]
  5. METFORMIN [Concomitant]

REACTIONS (1)
  - Injection site extravasation [Unknown]
